FAERS Safety Report 21333842 (Version 33)
Quarter: 2025Q1

REPORT INFORMATION
  Report Type: Report from Study
  Country: CA (occurrence: CA)
  Receive Date: 20220914
  Receipt Date: 20250109
  Transmission Date: 20250409
  Serious: Yes (Life-Threatening, Hospitalization, Other)
  Sender: PFIZER
  Company Number: CA-BRISTOL-MYERS SQUIBB COMPANY-BMS-2019-121179

PATIENT
  Age: 72 Year
  Sex: Male
  Weight: 150 kg

DRUGS (573)
  1. ELIQUIS [Suspect]
     Active Substance: APIXABAN
     Route: 065
  2. ELIQUIS [Suspect]
     Active Substance: APIXABAN
     Route: 065
  3. ELIQUIS [Suspect]
     Active Substance: APIXABAN
     Route: 065
  4. ELIQUIS [Suspect]
     Active Substance: APIXABAN
     Route: 065
  5. ELIQUIS [Suspect]
     Active Substance: APIXABAN
     Route: 065
  6. ELIQUIS [Suspect]
     Active Substance: APIXABAN
     Route: 065
  7. ELIQUIS [Suspect]
     Active Substance: APIXABAN
     Route: 065
  8. ELIQUIS [Suspect]
     Active Substance: APIXABAN
     Route: 065
  9. LEVOFLOXACIN [Suspect]
     Active Substance: LEVOFLOXACIN
     Dosage: 500.0 MILLIGRAM, 1 EVERY 1 DAY
     Route: 065
  10. LEVOFLOXACIN [Suspect]
     Active Substance: LEVOFLOXACIN
     Route: 065
  11. LEVOFLOXACIN [Suspect]
     Active Substance: LEVOFLOXACIN
     Dosage: 500.0 MILLIGRAM, 1 EVERY 1 DAY
     Route: 065
  12. LEVOFLOXACIN [Suspect]
     Active Substance: LEVOFLOXACIN
     Route: 065
  13. LEVOFLOXACIN [Suspect]
     Active Substance: LEVOFLOXACIN
     Route: 065
  14. LEVOFLOXACIN [Suspect]
     Active Substance: LEVOFLOXACIN
     Route: 065
  15. CALCIUM CHLORIDE [Suspect]
     Active Substance: CALCIUM CHLORIDE
     Route: 065
  16. AMOXICILLIN AND CLAVULANATE POTASSIUM [Suspect]
     Active Substance: AMOXICILLIN\CLAVULANATE POTASSIUM
     Route: 065
  17. AMOXICILLIN AND CLAVULANATE POTASSIUM [Suspect]
     Active Substance: AMOXICILLIN\CLAVULANATE POTASSIUM
     Route: 065
  18. AMOXICILLIN AND CLAVULANATE POTASSIUM [Suspect]
     Active Substance: AMOXICILLIN\CLAVULANATE POTASSIUM
     Route: 065
  19. AMOXICILLIN AND CLAVULANATE POTASSIUM [Suspect]
     Active Substance: AMOXICILLIN\CLAVULANATE POTASSIUM
     Route: 065
  20. AMOXICILLIN AND CLAVULANATE POTASSIUM [Suspect]
     Active Substance: AMOXICILLIN\CLAVULANATE POTASSIUM
     Route: 065
  21. AMOXICILLIN AND CLAVULANATE POTASSIUM [Suspect]
     Active Substance: AMOXICILLIN\CLAVULANATE POTASSIUM
     Route: 065
  22. DOXAZOSIN MESYLATE [Suspect]
     Active Substance: DOXAZOSIN MESYLATE
     Route: 065
  23. DOXAZOSIN MESYLATE [Suspect]
     Active Substance: DOXAZOSIN MESYLATE
     Route: 065
  24. DOXAZOSIN MESYLATE [Suspect]
     Active Substance: DOXAZOSIN MESYLATE
     Route: 065
  25. DOXAZOSIN MESYLATE [Suspect]
     Active Substance: DOXAZOSIN MESYLATE
     Route: 065
  26. DOXAZOSIN MESYLATE [Suspect]
     Active Substance: DOXAZOSIN MESYLATE
     Route: 065
  27. DOXAZOSIN MESYLATE [Suspect]
     Active Substance: DOXAZOSIN MESYLATE
     Route: 065
  28. DOXAZOSIN MESYLATE [Suspect]
     Active Substance: DOXAZOSIN MESYLATE
     Route: 065
  29. DOXAZOSIN MESYLATE [Suspect]
     Active Substance: DOXAZOSIN MESYLATE
     Route: 065
  30. DOXAZOSIN MESYLATE [Suspect]
     Active Substance: DOXAZOSIN MESYLATE
     Route: 065
  31. DOXAZOSIN MESYLATE [Suspect]
     Active Substance: DOXAZOSIN MESYLATE
     Route: 065
  32. DOXAZOSIN MESYLATE [Suspect]
     Active Substance: DOXAZOSIN MESYLATE
     Route: 065
  33. ESCITALOPRAM OXALATE [Suspect]
     Active Substance: ESCITALOPRAM OXALATE
     Route: 065
  34. ESCITALOPRAM OXALATE [Suspect]
     Active Substance: ESCITALOPRAM OXALATE
     Dosage: 10 MG, 1 EVERY 24 HOURS
     Route: 065
  35. ESCITALOPRAM OXALATE [Suspect]
     Active Substance: ESCITALOPRAM OXALATE
     Dosage: 2 DF, DAILY (1 EVERY 1 DAYS)
     Route: 065
  36. ESCITALOPRAM OXALATE [Suspect]
     Active Substance: ESCITALOPRAM OXALATE
     Dosage: 10 MG, 2X/DAY
     Route: 065
  37. ESCITALOPRAM OXALATE [Suspect]
     Active Substance: ESCITALOPRAM OXALATE
     Route: 065
  38. ESCITALOPRAM OXALATE [Suspect]
     Active Substance: ESCITALOPRAM OXALATE
     Route: 065
  39. ESCITALOPRAM OXALATE [Suspect]
     Active Substance: ESCITALOPRAM OXALATE
     Route: 065
  40. ESCITALOPRAM OXALATE [Suspect]
     Active Substance: ESCITALOPRAM OXALATE
     Route: 065
  41. ESCITALOPRAM OXALATE [Suspect]
     Active Substance: ESCITALOPRAM OXALATE
     Route: 065
  42. ESCITALOPRAM OXALATE [Suspect]
     Active Substance: ESCITALOPRAM OXALATE
     Dosage: 1 DF, 1X/DAY
     Route: 065
  43. ESCITALOPRAM OXALATE [Suspect]
     Active Substance: ESCITALOPRAM OXALATE
     Route: 065
  44. ESCITALOPRAM OXALATE [Suspect]
     Active Substance: ESCITALOPRAM OXALATE
     Dosage: 10 MG, 1 EVERY 24 HOURS
     Route: 065
  45. ESCITALOPRAM OXALATE [Suspect]
     Active Substance: ESCITALOPRAM OXALATE
     Dosage: 10 MG, 1 EVERY 12 HOURS
     Route: 065
  46. ESCITALOPRAM OXALATE [Suspect]
     Active Substance: ESCITALOPRAM OXALATE
     Dosage: 10 MG, 1 EVERY 24 HOURS
     Route: 065
  47. ESCITALOPRAM OXALATE [Suspect]
     Active Substance: ESCITALOPRAM OXALATE
     Dosage: 10 MG, 1 EVERY 24 HOURS
     Route: 065
  48. ESCITALOPRAM OXALATE [Suspect]
     Active Substance: ESCITALOPRAM OXALATE
     Dosage: 10 MG, 1 EVERY 24 HOURS
     Route: 065
  49. ESCITALOPRAM OXALATE [Suspect]
     Active Substance: ESCITALOPRAM OXALATE
     Dosage: 10 MG, 1 EVERY 24 HOURS
     Route: 065
  50. ESCITALOPRAM OXALATE [Suspect]
     Active Substance: ESCITALOPRAM OXALATE
     Dosage: 10 MG, 1 EVERY 12 HOURS
     Route: 065
  51. ESCITALOPRAM OXALATE [Suspect]
     Active Substance: ESCITALOPRAM OXALATE
     Route: 065
  52. ESCITALOPRAM OXALATE [Suspect]
     Active Substance: ESCITALOPRAM OXALATE
     Route: 065
  53. ESCITALOPRAM OXALATE [Suspect]
     Active Substance: ESCITALOPRAM OXALATE
     Route: 065
  54. ESCITALOPRAM OXALATE [Suspect]
     Active Substance: ESCITALOPRAM OXALATE
     Route: 065
  55. ESCITALOPRAM OXALATE [Suspect]
     Active Substance: ESCITALOPRAM OXALATE
     Route: 065
  56. ESCITALOPRAM OXALATE [Suspect]
     Active Substance: ESCITALOPRAM OXALATE
     Route: 065
  57. ESCITALOPRAM OXALATE [Suspect]
     Active Substance: ESCITALOPRAM OXALATE
     Route: 065
  58. ESCITALOPRAM OXALATE [Suspect]
     Active Substance: ESCITALOPRAM OXALATE
     Route: 065
  59. ESCITALOPRAM OXALATE [Suspect]
     Active Substance: ESCITALOPRAM OXALATE
     Route: 065
  60. ESCITALOPRAM OXALATE [Suspect]
     Active Substance: ESCITALOPRAM OXALATE
     Route: 065
  61. ESCITALOPRAM OXALATE [Suspect]
     Active Substance: ESCITALOPRAM OXALATE
     Route: 065
  62. ESCITALOPRAM OXALATE [Suspect]
     Active Substance: ESCITALOPRAM OXALATE
     Route: 065
  63. ESCITALOPRAM OXALATE [Suspect]
     Active Substance: ESCITALOPRAM OXALATE
     Route: 065
  64. ESCITALOPRAM OXALATE [Suspect]
     Active Substance: ESCITALOPRAM OXALATE
     Route: 065
  65. ESCITALOPRAM OXALATE [Suspect]
     Active Substance: ESCITALOPRAM OXALATE
     Route: 065
  66. ESCITALOPRAM OXALATE [Suspect]
     Active Substance: ESCITALOPRAM OXALATE
     Route: 065
  67. ESCITALOPRAM OXALATE [Suspect]
     Active Substance: ESCITALOPRAM OXALATE
     Route: 065
  68. MOXIFLOXACIN HYDROCHLORIDE [Suspect]
     Active Substance: MOXIFLOXACIN HYDROCHLORIDE
     Route: 065
  69. MOXIFLOXACIN HYDROCHLORIDE [Suspect]
     Active Substance: MOXIFLOXACIN HYDROCHLORIDE
     Route: 065
  70. MOXIFLOXACIN HYDROCHLORIDE [Suspect]
     Active Substance: MOXIFLOXACIN HYDROCHLORIDE
     Dosage: 15 MG, 1X/DAY
     Route: 065
  71. MOXIFLOXACIN HYDROCHLORIDE [Suspect]
     Active Substance: MOXIFLOXACIN HYDROCHLORIDE
     Route: 065
  72. MOXIFLOXACIN HYDROCHLORIDE [Suspect]
     Active Substance: MOXIFLOXACIN HYDROCHLORIDE
     Route: 065
  73. MOXIFLOXACIN HYDROCHLORIDE [Suspect]
     Active Substance: MOXIFLOXACIN HYDROCHLORIDE
     Route: 065
  74. MOXIFLOXACIN HYDROCHLORIDE [Suspect]
     Active Substance: MOXIFLOXACIN HYDROCHLORIDE
     Route: 065
  75. PREDNISONE [Suspect]
     Active Substance: PREDNISONE
     Dosage: 15 MG, DAILY (1 EVERY 1 DAYS)
     Route: 065
  76. PREDNISONE [Suspect]
     Active Substance: PREDNISONE
     Dosage: 15 MG, DAILY (1 EVERY 1 DAYS)
     Route: 065
  77. PREDNISONE [Suspect]
     Active Substance: PREDNISONE
     Dosage: 10.0 MILLIGRAM
     Route: 065
  78. PREDNISONE [Suspect]
     Active Substance: PREDNISONE
     Dosage: 15 MG, DAILY (1 EVERY 24 HOURS)
     Route: 065
  79. PREDNISONE [Suspect]
     Active Substance: PREDNISONE
     Dosage: 15 MG, DAILY (1 EVERY 24 HOURS)
     Route: 065
  80. PREDNISONE [Suspect]
     Active Substance: PREDNISONE
     Route: 065
  81. PREDNISONE [Suspect]
     Active Substance: PREDNISONE
     Route: 065
  82. PREDNISONE [Suspect]
     Active Substance: PREDNISONE
     Dosage: UNK UNK, DAILY
     Route: 065
  83. PREDNISONE [Suspect]
     Active Substance: PREDNISONE
     Dosage: 50 MG, DAILY
     Route: 065
  84. PREDNISONE [Suspect]
     Active Substance: PREDNISONE
     Dosage: 1 DF, DAILY
     Route: 065
  85. PREDNISONE [Suspect]
     Active Substance: PREDNISONE
     Route: 065
  86. PREDNISONE [Suspect]
     Active Substance: PREDNISONE
     Route: 065
  87. PREDNISONE [Suspect]
     Active Substance: PREDNISONE
     Route: 065
  88. PREDNISONE [Suspect]
     Active Substance: PREDNISONE
     Route: 065
  89. PREDNISONE [Suspect]
     Active Substance: PREDNISONE
     Route: 065
  90. PREDNISONE [Suspect]
     Active Substance: PREDNISONE
     Route: 065
  91. PREDNISONE [Suspect]
     Active Substance: PREDNISONE
     Route: 065
  92. PREDNISONE [Suspect]
     Active Substance: PREDNISONE
     Route: 065
  93. PREDNISONE [Suspect]
     Active Substance: PREDNISONE
     Route: 065
  94. PREDNISONE [Suspect]
     Active Substance: PREDNISONE
     Route: 065
  95. PREDNISONE [Suspect]
     Active Substance: PREDNISONE
     Dosage: 10.0 MILLIGRAM
     Route: 065
  96. PREDNISONE [Suspect]
     Active Substance: PREDNISONE
     Route: 065
  97. PREDNISONE [Suspect]
     Active Substance: PREDNISONE
     Dosage: 10.0 MILLIGRAM 1 EVERY 24 HOURS
     Route: 065
  98. ALBUTEROL [Suspect]
     Active Substance: ALBUTEROL
     Indication: Asthma
     Dosage: 2 DF, DAILY (METERED DOSE, AEROSOL(AEROSOL FOR INHALATION)
     Route: 065
  99. ALBUTEROL [Suspect]
     Active Substance: ALBUTEROL
     Indication: Eosinophilic granulomatosis with polyangiitis
     Route: 065
  100. ALBUTEROL [Suspect]
     Active Substance: ALBUTEROL
     Dosage: UNK (1 EVERY 1 DAYS)
     Route: 065
  101. ALBUTEROL [Suspect]
     Active Substance: ALBUTEROL
     Dosage: 2 DF, DAILY (1 EVERY 1 DAYS)
     Route: 065
  102. ALBUTEROL [Suspect]
     Active Substance: ALBUTEROL
     Dosage: 1 DF, 1X/DAY (METERED DOSE, AEROSOL(AEROSOL FOR INHALATION)
     Route: 065
  103. ALBUTEROL [Suspect]
     Active Substance: ALBUTEROL
     Dosage: 1 UG
  104. ALBUTEROL [Suspect]
     Active Substance: ALBUTEROL
     Dosage: 1 DF, 1X/DAY METERED-DOSE (AEROSOL)
     Route: 065
  105. ALBUTEROL SULFATE [Suspect]
     Active Substance: ALBUTEROL SULFATE
     Indication: Asthma
     Route: 065
  106. ALBUTEROL SULFATE [Suspect]
     Active Substance: ALBUTEROL SULFATE
     Dosage: 2 DF, DAILY (1 EVERY 1 DAYS)
     Route: 065
  107. ALBUTEROL SULFATE [Suspect]
     Active Substance: ALBUTEROL SULFATE
     Route: 065
  108. ALBUTEROL SULFATE [Suspect]
     Active Substance: ALBUTEROL SULFATE
     Route: 065
  109. ALBUTEROL SULFATE [Suspect]
     Active Substance: ALBUTEROL SULFATE
     Route: 065
  110. ALBUTEROL SULFATE [Suspect]
     Active Substance: ALBUTEROL SULFATE
     Dosage: 2 DF, DAILY (1 EVERY 1 DAYS)
     Route: 065
  111. SPIRIVA [Suspect]
     Active Substance: TIOTROPIUM BROMIDE MONOHYDRATE
     Dosage: 2 DOSAGE FORM, 1 EVERY 1 (DAYS)
     Route: 065
  112. SPIRIVA [Suspect]
     Active Substance: TIOTROPIUM BROMIDE MONOHYDRATE
     Dosage: 2 DOSAGE FORM, 1 EVERY 1 (DAYS)
     Route: 065
  113. SPIRIVA [Suspect]
     Active Substance: TIOTROPIUM BROMIDE MONOHYDRATE
     Dosage: 2 DOSAGE FORM, 1 EVERY 1 DAYS
     Route: 065
  114. SPIRIVA [Suspect]
     Active Substance: TIOTROPIUM BROMIDE MONOHYDRATE
     Route: 065
  115. SPIRIVA [Suspect]
     Active Substance: TIOTROPIUM BROMIDE MONOHYDRATE
     Dosage: 2 DOSAGE FORM, 1 EVERY 1 DAYS
     Route: 065
  116. SPIRIVA [Suspect]
     Active Substance: TIOTROPIUM BROMIDE MONOHYDRATE
     Dosage: 2 MG, DAILY
     Route: 065
  117. SPIRIVA [Suspect]
     Active Substance: TIOTROPIUM BROMIDE MONOHYDRATE
     Dosage: 2 DF, ALTERNATE DAY
     Route: 065
  118. SPIRIVA [Suspect]
     Active Substance: TIOTROPIUM BROMIDE MONOHYDRATE
     Route: 065
  119. SPIRIVA [Suspect]
     Active Substance: TIOTROPIUM BROMIDE MONOHYDRATE
     Route: 065
  120. SPIRIVA [Suspect]
     Active Substance: TIOTROPIUM BROMIDE MONOHYDRATE
     Route: 065
  121. SPIRIVA [Suspect]
     Active Substance: TIOTROPIUM BROMIDE MONOHYDRATE
     Route: 065
  122. SPIRIVA [Suspect]
     Active Substance: TIOTROPIUM BROMIDE MONOHYDRATE
     Route: 065
  123. SPIRIVA [Suspect]
     Active Substance: TIOTROPIUM BROMIDE MONOHYDRATE
     Route: 065
  124. SPIRIVA [Suspect]
     Active Substance: TIOTROPIUM BROMIDE MONOHYDRATE
     Route: 065
  125. SPIRIVA [Suspect]
     Active Substance: TIOTROPIUM BROMIDE MONOHYDRATE
     Route: 065
  126. SPIRIVA [Suspect]
     Active Substance: TIOTROPIUM BROMIDE MONOHYDRATE
     Route: 065
  127. SPIRIVA [Suspect]
     Active Substance: TIOTROPIUM BROMIDE MONOHYDRATE
     Route: 065
  128. SPIRIVA [Suspect]
     Active Substance: TIOTROPIUM BROMIDE MONOHYDRATE
     Route: 065
  129. SPIRIVA [Suspect]
     Active Substance: TIOTROPIUM BROMIDE MONOHYDRATE
     Route: 065
  130. SPIRIVA [Suspect]
     Active Substance: TIOTROPIUM BROMIDE MONOHYDRATE
     Route: 065
  131. SPIRIVA [Suspect]
     Active Substance: TIOTROPIUM BROMIDE MONOHYDRATE
     Route: 065
  132. SPIRIVA [Suspect]
     Active Substance: TIOTROPIUM BROMIDE MONOHYDRATE
     Route: 065
  133. SPIRIVA [Suspect]
     Active Substance: TIOTROPIUM BROMIDE MONOHYDRATE
     Route: 065
  134. SPIRIVA [Suspect]
     Active Substance: TIOTROPIUM BROMIDE MONOHYDRATE
     Route: 065
  135. SPIRIVA [Suspect]
     Active Substance: TIOTROPIUM BROMIDE MONOHYDRATE
     Route: 065
  136. SPIRIVA [Suspect]
     Active Substance: TIOTROPIUM BROMIDE MONOHYDRATE
     Route: 065
  137. SPIRIVA [Suspect]
     Active Substance: TIOTROPIUM BROMIDE MONOHYDRATE
     Route: 065
  138. SPIRIVA [Suspect]
     Active Substance: TIOTROPIUM BROMIDE MONOHYDRATE
     Route: 065
  139. SPIRIVA [Suspect]
     Active Substance: TIOTROPIUM BROMIDE MONOHYDRATE
     Route: 065
  140. SPIRIVA [Suspect]
     Active Substance: TIOTROPIUM BROMIDE MONOHYDRATE
     Route: 065
  141. SPIRIVA [Suspect]
     Active Substance: TIOTROPIUM BROMIDE MONOHYDRATE
     Route: 065
  142. SPIRIVA [Suspect]
     Active Substance: TIOTROPIUM BROMIDE MONOHYDRATE
     Route: 065
  143. SPIRIVA [Suspect]
     Active Substance: TIOTROPIUM BROMIDE MONOHYDRATE
     Route: 065
  144. SPIRIVA [Suspect]
     Active Substance: TIOTROPIUM BROMIDE MONOHYDRATE
     Route: 065
  145. SPIRIVA [Suspect]
     Active Substance: TIOTROPIUM BROMIDE MONOHYDRATE
     Route: 065
  146. SPIRIVA [Suspect]
     Active Substance: TIOTROPIUM BROMIDE MONOHYDRATE
     Route: 065
  147. SPIRIVA [Suspect]
     Active Substance: TIOTROPIUM BROMIDE MONOHYDRATE
     Route: 065
  148. DILTIAZEM [Suspect]
     Active Substance: DILTIAZEM
     Route: 065
  149. DILTIAZEM [Suspect]
     Active Substance: DILTIAZEM
     Route: 065
  150. DILTIAZEM [Suspect]
     Active Substance: DILTIAZEM
     Route: 065
  151. DILTIAZEM [Suspect]
     Active Substance: DILTIAZEM
     Route: 065
  152. DILTIAZEM [Suspect]
     Active Substance: DILTIAZEM
     Route: 065
  153. DILTIAZEM [Suspect]
     Active Substance: DILTIAZEM
     Route: 065
  154. DILTIAZEM [Suspect]
     Active Substance: DILTIAZEM
     Route: 065
  155. DILTIAZEM [Suspect]
     Active Substance: DILTIAZEM
     Route: 065
  156. DILTIAZEM [Suspect]
     Active Substance: DILTIAZEM
     Route: 065
  157. DILTIAZEM [Suspect]
     Active Substance: DILTIAZEM
     Route: 065
  158. DILTIAZEM [Suspect]
     Active Substance: DILTIAZEM
     Route: 065
  159. DILTIAZEM [Suspect]
     Active Substance: DILTIAZEM
     Route: 065
  160. DILTIAZEM [Suspect]
     Active Substance: DILTIAZEM
     Route: 065
  161. DILTIAZEM [Suspect]
     Active Substance: DILTIAZEM
     Route: 065
  162. DILTIAZEM [Suspect]
     Active Substance: DILTIAZEM
     Route: 065
  163. DILTIAZEM [Suspect]
     Active Substance: DILTIAZEM
     Route: 065
  164. DILTIAZEM [Suspect]
     Active Substance: DILTIAZEM
     Route: 065
  165. DILTIAZEM [Suspect]
     Active Substance: DILTIAZEM
     Route: 065
  166. DILTIAZEM [Suspect]
     Active Substance: DILTIAZEM
     Route: 065
  167. DILTIAZEM [Suspect]
     Active Substance: DILTIAZEM
     Route: 065
  168. DILTIAZEM [Suspect]
     Active Substance: DILTIAZEM
  169. DILTIAZEM [Suspect]
     Active Substance: DILTIAZEM
  170. DILTIAZEM [Suspect]
     Active Substance: DILTIAZEM
     Dosage: 15 MG, DAILY
  171. DILTIAZEM [Suspect]
     Active Substance: DILTIAZEM
  172. DILTIAZEM [Suspect]
     Active Substance: DILTIAZEM
  173. DILTIAZEM [Suspect]
     Active Substance: DILTIAZEM
  174. DILTIAZEM [Suspect]
     Active Substance: DILTIAZEM
  175. DILTIAZEM [Suspect]
     Active Substance: DILTIAZEM
  176. ZENHALE [Suspect]
     Active Substance: FORMOTEROL FUMARATE\MOMETASONE FUROATE
     Dosage: 2 DF, 2X/DAY. METERED DOSE(AEROSOL FOR INHALATION)
  177. ZENHALE [Suspect]
     Active Substance: FORMOTEROL FUMARATE\MOMETASONE FUROATE
  178. ZENHALE [Suspect]
     Active Substance: FORMOTEROL FUMARATE\MOMETASONE FUROATE
     Dosage: 100 MG, 1X/DAY. METERED DOSE
  179. ZENHALE [Suspect]
     Active Substance: FORMOTEROL FUMARATE\MOMETASONE FUROATE
     Dosage: 500 MG, QD METERED DOSE
     Route: 065
  180. ZENHALE [Suspect]
     Active Substance: FORMOTEROL FUMARATE\MOMETASONE FUROATE
     Dosage: 500 MILLIGRAM, 1 EVERY 1 (DAYS)
     Route: 065
  181. ZENHALE [Suspect]
     Active Substance: FORMOTEROL FUMARATE\MOMETASONE FUROATE
  182. ZENHALE [Suspect]
     Active Substance: FORMOTEROL FUMARATE\MOMETASONE FUROATE
     Dosage: 2 DF, DAILY (2.0 DOSAGE FORMS, 2 EVERY 1 DAYS)
     Route: 065
  183. ZENHALE [Suspect]
     Active Substance: FORMOTEROL FUMARATE\MOMETASONE FUROATE
     Route: 065
  184. ZENHALE [Suspect]
     Active Substance: FORMOTEROL FUMARATE\MOMETASONE FUROATE
     Route: 065
  185. ZENHALE [Suspect]
     Active Substance: FORMOTEROL FUMARATE\MOMETASONE FUROATE
     Route: 065
  186. ZENHALE [Suspect]
     Active Substance: FORMOTEROL FUMARATE\MOMETASONE FUROATE
     Route: 065
  187. ZENHALE [Suspect]
     Active Substance: FORMOTEROL FUMARATE\MOMETASONE FUROATE
     Route: 065
  188. ZENHALE [Suspect]
     Active Substance: FORMOTEROL FUMARATE\MOMETASONE FUROATE
     Route: 065
  189. ZENHALE [Suspect]
     Active Substance: FORMOTEROL FUMARATE\MOMETASONE FUROATE
     Route: 065
  190. ZENHALE [Suspect]
     Active Substance: FORMOTEROL FUMARATE\MOMETASONE FUROATE
     Route: 065
  191. ZENHALE [Suspect]
     Active Substance: FORMOTEROL FUMARATE\MOMETASONE FUROATE
     Dosage: 10 MG, 2X/DAY
     Route: 065
  192. ZENHALE [Suspect]
     Active Substance: FORMOTEROL FUMARATE\MOMETASONE FUROATE
     Route: 065
  193. ZENHALE [Suspect]
     Active Substance: FORMOTEROL FUMARATE\MOMETASONE FUROATE
     Route: 065
  194. ZENHALE [Suspect]
     Active Substance: FORMOTEROL FUMARATE\MOMETASONE FUROATE
     Route: 065
  195. ZENHALE [Suspect]
     Active Substance: FORMOTEROL FUMARATE\MOMETASONE FUROATE
     Route: 065
  196. ZENHALE [Suspect]
     Active Substance: FORMOTEROL FUMARATE\MOMETASONE FUROATE
     Dosage: 4 DOSAGE FORM
  197. ERGOCALCIFEROL [Suspect]
     Active Substance: ERGOCALCIFEROL
     Route: 065
  198. ERGOCALCIFEROL [Suspect]
     Active Substance: ERGOCALCIFEROL
     Route: 065
  199. ERGOCALCIFEROL [Suspect]
     Active Substance: ERGOCALCIFEROL
     Route: 065
  200. ERGOCALCIFEROL [Suspect]
     Active Substance: ERGOCALCIFEROL
  201. ERGOCALCIFEROL [Suspect]
     Active Substance: ERGOCALCIFEROL
     Route: 065
  202. ERGOCALCIFEROL [Suspect]
     Active Substance: ERGOCALCIFEROL
     Route: 065
  203. ERGOCALCIFEROL [Suspect]
     Active Substance: ERGOCALCIFEROL
  204. ERGOCALCIFEROL [Suspect]
     Active Substance: ERGOCALCIFEROL
  205. ERGOCALCIFEROL [Suspect]
     Active Substance: ERGOCALCIFEROL
  206. TIAZAC [Suspect]
     Active Substance: DILTIAZEM HYDROCHLORIDE
     Route: 065
  207. TIAZAC [Suspect]
     Active Substance: DILTIAZEM HYDROCHLORIDE
     Dosage: 15 MILLIGRAM, 1 EVERY 1 (DAYS)
     Route: 065
  208. TIAZAC [Suspect]
     Active Substance: DILTIAZEM HYDROCHLORIDE
     Route: 065
  209. BUDESONIDE [Suspect]
     Active Substance: BUDESONIDE
     Route: 048
  210. BUDESONIDE [Suspect]
     Active Substance: BUDESONIDE
     Route: 055
  211. BUDESONIDE [Suspect]
     Active Substance: BUDESONIDE
     Route: 048
  212. BUDESONIDE [Suspect]
     Active Substance: BUDESONIDE
     Route: 055
  213. BUDESONIDE [Suspect]
     Active Substance: BUDESONIDE
     Route: 065
  214. BUDESONIDE [Suspect]
     Active Substance: BUDESONIDE
     Route: 065
  215. OMNARIS [Suspect]
     Active Substance: CICLESONIDE
     Dosage: 15 MG, DAILY (SPRAY METERED DOSE)
     Route: 055
  216. OMNARIS [Suspect]
     Active Substance: CICLESONIDE
     Route: 055
  217. OMNARIS [Suspect]
     Active Substance: CICLESONIDE
     Route: 065
  218. OMNARIS [Suspect]
     Active Substance: CICLESONIDE
     Route: 045
  219. OMNARIS [Suspect]
     Active Substance: CICLESONIDE
     Dosage: 120 MG, DAILY
     Route: 065
  220. OMNARIS [Suspect]
     Active Substance: CICLESONIDE
     Route: 065
  221. OMNARIS [Suspect]
     Active Substance: CICLESONIDE
     Dosage: 15 MG, DAILY, SPRAY METERED DOSE
     Route: 055
  222. CALCIUM CARBONATE\CHOLECALCIFEROL [Suspect]
     Active Substance: CALCIUM CARBONATE\CHOLECALCIFEROL
     Route: 065
  223. CALCIUM CARBONATE\CHOLECALCIFEROL [Suspect]
     Active Substance: CALCIUM CARBONATE\CHOLECALCIFEROL
     Route: 065
  224. CICLESONIDE [Suspect]
     Active Substance: CICLESONIDE
     Route: 065
  225. CICLESONIDE [Suspect]
     Active Substance: CICLESONIDE
     Dosage: 15 MG, DAILY 1 EVERY 24 HOURS
     Route: 065
  226. CICLESONIDE [Suspect]
     Active Substance: CICLESONIDE
     Route: 065
  227. CICLESONIDE [Suspect]
     Active Substance: CICLESONIDE
     Route: 065
  228. CICLESONIDE [Suspect]
     Active Substance: CICLESONIDE
     Route: 065
  229. CICLESONIDE [Suspect]
     Active Substance: CICLESONIDE
     Route: 065
  230. CICLESONIDE [Suspect]
     Active Substance: CICLESONIDE
     Route: 065
  231. CICLESONIDE [Suspect]
     Active Substance: CICLESONIDE
     Route: 065
  232. CICLESONIDE [Suspect]
     Active Substance: CICLESONIDE
     Route: 065
  233. CICLESONIDE [Suspect]
     Active Substance: CICLESONIDE
     Route: 065
  234. CICLESONIDE [Suspect]
     Active Substance: CICLESONIDE
     Route: 065
  235. CICLESONIDE [Suspect]
     Active Substance: CICLESONIDE
     Route: 065
  236. CICLESONIDE [Suspect]
     Active Substance: CICLESONIDE
     Route: 065
  237. CICLESONIDE [Suspect]
     Active Substance: CICLESONIDE
     Route: 065
  238. CICLESONIDE [Suspect]
     Active Substance: CICLESONIDE
     Route: 065
  239. ADVAIR HFA [Suspect]
     Active Substance: FLUTICASONE PROPIONATE\SALMETEROL XINAFOATE
     Dosage: 500 MG, 1X/DAY
  240. ADVAIR HFA [Suspect]
     Active Substance: FLUTICASONE PROPIONATE\SALMETEROL XINAFOATE
     Dosage: 500 MG, 1X/DAY
  241. ADVAIR HFA [Suspect]
     Active Substance: FLUTICASONE PROPIONATE\SALMETEROL XINAFOATE
     Dosage: 2 DF, 2X/DAY
  242. ADVAIR HFA [Suspect]
     Active Substance: FLUTICASONE PROPIONATE\SALMETEROL XINAFOATE
  243. ADVAIR HFA [Suspect]
     Active Substance: FLUTICASONE PROPIONATE\SALMETEROL XINAFOATE
     Route: 065
  244. ADVAIR HFA [Suspect]
     Active Substance: FLUTICASONE PROPIONATE\SALMETEROL XINAFOATE
     Route: 065
  245. ADVAIR HFA [Suspect]
     Active Substance: FLUTICASONE PROPIONATE\SALMETEROL XINAFOATE
     Route: 065
  246. ADVAIR HFA [Suspect]
     Active Substance: FLUTICASONE PROPIONATE\SALMETEROL XINAFOATE
     Route: 065
  247. ADVAIR HFA [Suspect]
     Active Substance: FLUTICASONE PROPIONATE\SALMETEROL XINAFOATE
     Route: 065
  248. CALCIUM CITRATE [Suspect]
     Active Substance: CALCIUM CITRATE
     Route: 065
  249. CALCIUM PHOSPHATE [Suspect]
     Active Substance: CALCIUM PHOSPHATE
     Route: 065
  250. MAGNESIUM OXIDE [Suspect]
     Active Substance: MAGNESIUM OXIDE
     Route: 065
  251. MAGNESIUM OXIDE [Suspect]
     Active Substance: MAGNESIUM OXIDE
     Dosage: 420 MG, 2X/DAY
  252. MAGNESIUM OXIDE [Suspect]
     Active Substance: MAGNESIUM OXIDE
     Dosage: 1 DF, DAILY
  253. MAGNESIUM OXIDE [Suspect]
     Active Substance: MAGNESIUM OXIDE
     Dosage: UNK
  254. MAGNESIUM OXIDE [Suspect]
     Active Substance: MAGNESIUM OXIDE
     Dosage: UNK, 2X/DAY
  255. MAGNESIUM OXIDE [Suspect]
     Active Substance: MAGNESIUM OXIDE
     Dosage: 2 DF, DAILY
  256. ERGOCALCIFEROL [Suspect]
     Active Substance: ERGOCALCIFEROL
     Route: 065
  257. AMOXICILLIN\CLAVULANATE POTASSIUM [Suspect]
     Active Substance: AMOXICILLIN\CLAVULANATE POTASSIUM
     Route: 065
  258. AMOXICILLIN\CLAVULANATE POTASSIUM [Suspect]
     Active Substance: AMOXICILLIN\CLAVULANATE POTASSIUM
     Route: 065
  259. AMOXICILLIN\CLAVULANATE POTASSIUM [Suspect]
     Active Substance: AMOXICILLIN\CLAVULANATE POTASSIUM
     Route: 065
  260. AMOXICILLIN\CLAVULANATE POTASSIUM [Suspect]
     Active Substance: AMOXICILLIN\CLAVULANATE POTASSIUM
     Route: 065
  261. AMOXICILLIN\CLAVULANATE POTASSIUM [Suspect]
     Active Substance: AMOXICILLIN\CLAVULANATE POTASSIUM
     Route: 065
  262. LEVOFLOXACIN [Suspect]
     Active Substance: LEVOFLOXACIN
     Dosage: 500 MG, DAILY (SINGLE USE AMPOULES)
     Route: 065
  263. LEVOFLOXACIN [Suspect]
     Active Substance: LEVOFLOXACIN
     Dosage: 500 MG, DAILY (SINGLE USE AMPOULES)
  264. LEVOFLOXACIN [Suspect]
     Active Substance: LEVOFLOXACIN
     Route: 065
  265. LEVOFLOXACIN [Suspect]
     Active Substance: LEVOFLOXACIN
     Route: 065
  266. CHOLECALCIFEROL [Suspect]
     Active Substance: CHOLECALCIFEROL
     Route: 065
  267. DOXAZOSIN MESYLATE [Suspect]
     Active Substance: DOXAZOSIN MESYLATE
     Route: 065
  268. DOXAZOSIN MESYLATE [Suspect]
     Active Substance: DOXAZOSIN MESYLATE
     Route: 065
  269. AMOXICILLIN\CLAVULANATE POTASSIUM [Suspect]
     Active Substance: AMOXICILLIN\CLAVULANATE POTASSIUM
  270. CALCIUM CARBONATE [Suspect]
     Active Substance: CALCIUM CARBONATE
     Route: 065
  271. ESCITALOPRAM OXALATE [Suspect]
     Active Substance: ESCITALOPRAM OXALATE
  272. CALCIUM CARBONATE\CALCIUM CITRATE [Suspect]
     Active Substance: CALCIUM CARBONATE\CALCIUM CITRATE
     Route: 065
  273. DILTIAZEM HYDROCHLORIDE [Suspect]
     Active Substance: DILTIAZEM HYDROCHLORIDE
     Route: 065
  274. DILTIAZEM HYDROCHLORIDE [Suspect]
     Active Substance: DILTIAZEM HYDROCHLORIDE
     Route: 065
  275. DILTIAZEM HYDROCHLORIDE [Suspect]
     Active Substance: DILTIAZEM HYDROCHLORIDE
     Route: 065
  276. DILTIAZEM HYDROCHLORIDE [Suspect]
     Active Substance: DILTIAZEM HYDROCHLORIDE
     Route: 065
  277. DILTIAZEM HYDROCHLORIDE [Suspect]
     Active Substance: DILTIAZEM HYDROCHLORIDE
     Route: 065
  278. VITAMIN D3 [Suspect]
     Active Substance: CHOLECALCIFEROL
     Route: 065
  279. VITAMIN D3 [Suspect]
     Active Substance: CHOLECALCIFEROL
     Route: 065
  280. VITAMIN D3 [Suspect]
     Active Substance: CHOLECALCIFEROL
     Route: 065
  281. VITAMIN D3 [Suspect]
     Active Substance: CHOLECALCIFEROL
  282. AMOXICILLIN\CLAVULANATE POTASSIUM [Suspect]
     Active Substance: AMOXICILLIN\CLAVULANATE POTASSIUM
     Route: 065
  283. AMOXICILLIN\CLAVULANATE POTASSIUM [Suspect]
     Active Substance: AMOXICILLIN\CLAVULANATE POTASSIUM
     Route: 065
  284. AMOXICILLIN\CLAVULANATE POTASSIUM [Suspect]
     Active Substance: AMOXICILLIN\CLAVULANATE POTASSIUM
     Route: 065
  285. AMOXICILLIN\CLAVULANATE POTASSIUM [Suspect]
     Active Substance: AMOXICILLIN\CLAVULANATE POTASSIUM
     Route: 065
  286. AMOXICILLIN\CLAVULANATE POTASSIUM [Suspect]
     Active Substance: AMOXICILLIN\CLAVULANATE POTASSIUM
     Route: 065
  287. CALCIUM CARBONATE\CHOLECALCIFEROL [Suspect]
     Active Substance: CALCIUM CARBONATE\CHOLECALCIFEROL
     Route: 065
  288. CALCIUM CARBONATE\CHOLECALCIFEROL [Suspect]
     Active Substance: CALCIUM CARBONATE\CHOLECALCIFEROL
     Route: 065
  289. FLUTICASONE PROPIONATE\SALMETEROL XINAFOATE [Suspect]
     Active Substance: FLUTICASONE PROPIONATE\SALMETEROL XINAFOATE
     Route: 065
  290. FLUTICASONE PROPIONATE\SALMETEROL XINAFOATE [Suspect]
     Active Substance: FLUTICASONE PROPIONATE\SALMETEROL XINAFOATE
     Route: 065
  291. FLUTICASONE PROPIONATE\SALMETEROL XINAFOATE [Suspect]
     Active Substance: FLUTICASONE PROPIONATE\SALMETEROL XINAFOATE
     Route: 065
  292. FLUTICASONE PROPIONATE [Suspect]
     Active Substance: FLUTICASONE PROPIONATE
     Route: 065
  293. DUTASTERIDE [Suspect]
     Active Substance: DUTASTERIDE
     Route: 065
  294. DUTASTERIDE [Suspect]
     Active Substance: DUTASTERIDE
     Dosage: 10 MG, 1 EVERY 24 HOURS
     Route: 065
  295. DUTASTERIDE [Suspect]
     Active Substance: DUTASTERIDE
     Route: 065
  296. DUTASTERIDE [Suspect]
     Active Substance: DUTASTERIDE
     Dosage: 10 MILLIGRAM
     Route: 065
  297. DUTASTERIDE [Suspect]
     Active Substance: DUTASTERIDE
     Route: 065
  298. DUTASTERIDE [Suspect]
     Active Substance: DUTASTERIDE
     Route: 065
  299. DUTASTERIDE [Suspect]
     Active Substance: DUTASTERIDE
     Dosage: 10 MILLIGRAM
     Route: 065
  300. DUTASTERIDE [Suspect]
     Active Substance: DUTASTERIDE
     Route: 065
  301. DUTASTERIDE [Suspect]
     Active Substance: DUTASTERIDE
     Route: 065
  302. DUTASTERIDE [Suspect]
     Active Substance: DUTASTERIDE
     Route: 065
  303. DUTASTERIDE [Suspect]
     Active Substance: DUTASTERIDE
     Route: 065
  304. DUTASTERIDE [Suspect]
     Active Substance: DUTASTERIDE
     Route: 065
  305. DUTASTERIDE [Suspect]
     Active Substance: DUTASTERIDE
     Route: 065
  306. DUTASTERIDE [Suspect]
     Active Substance: DUTASTERIDE
     Route: 065
  307. DUTASTERIDE [Suspect]
     Active Substance: DUTASTERIDE
     Route: 065
  308. DUTASTERIDE [Suspect]
     Active Substance: DUTASTERIDE
     Route: 065
  309. DUTASTERIDE [Suspect]
     Active Substance: DUTASTERIDE
     Route: 065
  310. DUTASTERIDE [Suspect]
     Active Substance: DUTASTERIDE
     Route: 065
  311. DUTASTERIDE [Suspect]
     Active Substance: DUTASTERIDE
     Route: 065
  312. DUTASTERIDE [Suspect]
     Active Substance: DUTASTERIDE
     Route: 065
  313. DUTASTERIDE [Suspect]
     Active Substance: DUTASTERIDE
     Route: 065
  314. DUTASTERIDE [Suspect]
     Active Substance: DUTASTERIDE
     Route: 065
  315. AMOXICILLIN SODIUM [Suspect]
     Active Substance: AMOXICILLIN SODIUM
     Route: 065
  316. TIOTROPIUM BROMIDE MONOHYDRATE [Concomitant]
     Active Substance: TIOTROPIUM BROMIDE MONOHYDRATE
     Dosage: 2 DF, DAILY
     Route: 065
  317. TIOTROPIUM BROMIDE MONOHYDRATE [Concomitant]
     Active Substance: TIOTROPIUM BROMIDE MONOHYDRATE
     Dosage: 2 DF, DAILY
     Route: 065
  318. TIOTROPIUM BROMIDE MONOHYDRATE [Concomitant]
     Active Substance: TIOTROPIUM BROMIDE MONOHYDRATE
     Dosage: 2 DF, DAILY
     Route: 065
  319. TIOTROPIUM BROMIDE MONOHYDRATE [Concomitant]
     Active Substance: TIOTROPIUM BROMIDE MONOHYDRATE
     Dosage: 2 DF, ALTERNATE DAY
     Route: 065
  320. TIOTROPIUM BROMIDE MONOHYDRATE [Concomitant]
     Active Substance: TIOTROPIUM BROMIDE MONOHYDRATE
     Route: 065
  321. TIOTROPIUM BROMIDE MONOHYDRATE [Concomitant]
     Active Substance: TIOTROPIUM BROMIDE MONOHYDRATE
     Route: 065
  322. AMOXICILLIN\CLAVULANATE POTASSIUM [Concomitant]
     Active Substance: AMOXICILLIN\CLAVULANATE POTASSIUM
     Route: 065
  323. CALCIUM\VITAMIN D [Concomitant]
     Active Substance: CALCIUM\VITAMIN D
     Route: 065
  324. CALCIUM\VITAMIN D [Concomitant]
     Active Substance: CALCIUM\VITAMIN D
  325. CALCIUM\CHOLECALCIFEROL\MAGNESIUM OXIDE [Concomitant]
     Active Substance: CALCIUM\CHOLECALCIFEROL\MAGNESIUM OXIDE
  326. CALCIUM\CHOLECALCIFEROL\MAGNESIUM OXIDE [Concomitant]
     Active Substance: CALCIUM\CHOLECALCIFEROL\MAGNESIUM OXIDE
     Route: 065
  327. CALCIUM\CHOLECALCIFEROL\MAGNESIUM OXIDE [Concomitant]
     Active Substance: CALCIUM\CHOLECALCIFEROL\MAGNESIUM OXIDE
     Route: 065
  328. SPIRIVA [Concomitant]
     Active Substance: TIOTROPIUM BROMIDE MONOHYDRATE
  329. SPIRIVA [Concomitant]
     Active Substance: TIOTROPIUM BROMIDE MONOHYDRATE
     Dosage: 2 DF, 1X/DAY
  330. MOXIFLOXACIN HYDROCHLORIDE [Concomitant]
     Active Substance: MOXIFLOXACIN HYDROCHLORIDE
     Route: 065
  331. MOXIFLOXACIN HYDROCHLORIDE [Concomitant]
     Active Substance: MOXIFLOXACIN HYDROCHLORIDE
     Route: 065
  332. MOXIFLOXACIN HYDROCHLORIDE [Concomitant]
     Active Substance: MOXIFLOXACIN HYDROCHLORIDE
     Dosage: 15 MG, 1X/DAY
  333. TIOTROPIUM BROMIDE MONOHYDRATE [Concomitant]
     Active Substance: TIOTROPIUM BROMIDE MONOHYDRATE
     Dosage: 2 DF, DAILY
     Route: 065
  334. TIOTROPIUM BROMIDE MONOHYDRATE [Concomitant]
     Active Substance: TIOTROPIUM BROMIDE MONOHYDRATE
     Dosage: 2 DF, ALTERNATE DAY
     Route: 065
  335. TIOTROPIUM BROMIDE MONOHYDRATE [Concomitant]
     Active Substance: TIOTROPIUM BROMIDE MONOHYDRATE
     Dosage: 2 DF, 1 EVERY 1 DAYS
     Route: 065
  336. TIOTROPIUM BROMIDE MONOHYDRATE [Concomitant]
     Active Substance: TIOTROPIUM BROMIDE MONOHYDRATE
     Dosage: 2 DF, 1 EVERY 1 DAYS
     Route: 065
  337. TIOTROPIUM BROMIDE MONOHYDRATE [Concomitant]
     Active Substance: TIOTROPIUM BROMIDE MONOHYDRATE
     Dosage: 2 DF, 1 EVERY 1 DAYS
     Route: 065
  338. TIOTROPIUM BROMIDE MONOHYDRATE [Concomitant]
     Active Substance: TIOTROPIUM BROMIDE MONOHYDRATE
     Route: 065
  339. TIOTROPIUM BROMIDE MONOHYDRATE [Concomitant]
     Active Substance: TIOTROPIUM BROMIDE MONOHYDRATE
     Route: 065
  340. TIOTROPIUM BROMIDE MONOHYDRATE [Concomitant]
     Active Substance: TIOTROPIUM BROMIDE MONOHYDRATE
     Route: 065
  341. TIOTROPIUM BROMIDE MONOHYDRATE [Concomitant]
     Active Substance: TIOTROPIUM BROMIDE MONOHYDRATE
     Route: 065
  342. SALMETEROL XINAFOATE [Concomitant]
     Active Substance: SALMETEROL XINAFOATE
     Route: 065
  343. ROSUVASTATIN CALCIUM [Concomitant]
     Active Substance: ROSUVASTATIN CALCIUM
     Route: 058
  344. ROSUVASTATIN CALCIUM [Concomitant]
     Active Substance: ROSUVASTATIN CALCIUM
     Dosage: 15 MG, DAILY (1 EVERY 1 DAYS)
     Route: 065
  345. ROSUVASTATIN CALCIUM [Concomitant]
     Active Substance: ROSUVASTATIN CALCIUM
     Route: 065
  346. ROSUVASTATIN CALCIUM [Concomitant]
     Active Substance: ROSUVASTATIN CALCIUM
     Route: 065
  347. ROSUVASTATIN CALCIUM [Concomitant]
     Active Substance: ROSUVASTATIN CALCIUM
     Route: 065
  348. ROSUVASTATIN CALCIUM [Concomitant]
     Active Substance: ROSUVASTATIN CALCIUM
     Dosage: 15 MG, DAILY (1 EVERY 1 DAYS)
     Route: 065
  349. ROSUVASTATIN CALCIUM [Concomitant]
     Active Substance: ROSUVASTATIN CALCIUM
     Route: 065
  350. ROSUVASTATIN CALCIUM [Concomitant]
     Active Substance: ROSUVASTATIN CALCIUM
     Route: 065
  351. ROSUVASTATIN CALCIUM [Concomitant]
     Active Substance: ROSUVASTATIN CALCIUM
     Route: 065
  352. LEVOFLOXACIN [Concomitant]
     Active Substance: LEVOFLOXACIN
     Dosage: 500 MG, 1X/DAY
  353. LEVOFLOXACIN [Concomitant]
     Active Substance: LEVOFLOXACIN
  354. LEVOFLOXACIN [Concomitant]
     Active Substance: LEVOFLOXACIN
  355. LEVOFLOXACIN [Concomitant]
     Active Substance: LEVOFLOXACIN
     Dosage: 3 DF, DAILY
  356. LEVOFLOXACIN [Concomitant]
     Active Substance: LEVOFLOXACIN
     Dosage: UNK
  357. LEVOFLOXACIN [Concomitant]
     Active Substance: LEVOFLOXACIN
     Dosage: 1 DF, DAILY
  358. LEVOFLOXACIN [Concomitant]
     Active Substance: LEVOFLOXACIN
  359. A CLAN [Concomitant]
     Route: 065
  360. FORMOTEROL\MOMETASONE [Concomitant]
     Active Substance: FORMOTEROL\MOMETASONE
     Dosage: 2 DF, 2X/DAY (AEROSOL, METERED DOSE)
     Route: 065
  361. UDB [BUDESONIDE] [Concomitant]
     Route: 048
  362. UDB [BUDESONIDE] [Concomitant]
     Route: 055
  363. UDB [BUDESONIDE] [Concomitant]
     Route: 055
  364. AMOXICILLIN AND CLAVULANATE POTASSIUM [Concomitant]
     Active Substance: AMOXICILLIN\CLAVULANATE POTASSIUM
     Route: 065
  365. CALCIUM CARBONATE\CHOLECALCIFEROL [Concomitant]
     Active Substance: CALCIUM CARBONATE\CHOLECALCIFEROL
     Route: 065
  366. CALCIUM CARBONATE\CHOLECALCIFEROL [Concomitant]
     Active Substance: CALCIUM CARBONATE\CHOLECALCIFEROL
     Route: 065
  367. CALCIUM CARBONATE\CHOLECALCIFEROL [Concomitant]
     Active Substance: CALCIUM CARBONATE\CHOLECALCIFEROL
     Route: 065
  368. CALCIUM CARBONATE\CHOLECALCIFEROL [Concomitant]
     Active Substance: CALCIUM CARBONATE\CHOLECALCIFEROL
     Route: 065
  369. DILTIAZEM [Concomitant]
     Active Substance: DILTIAZEM
  370. DILTIAZEM [Concomitant]
     Active Substance: DILTIAZEM
  371. OMNARIS [Concomitant]
     Active Substance: CICLESONIDE
     Route: 045
  372. OMNARIS [Concomitant]
     Active Substance: CICLESONIDE
     Route: 065
  373. CHOLECALCIFEROL [Concomitant]
     Active Substance: CHOLECALCIFEROL
     Route: 065
  374. ROSUVASTATIN [Concomitant]
     Active Substance: ROSUVASTATIN
     Dosage: 15 MG, DAILY
     Route: 065
  375. ROSUVASTATIN [Concomitant]
     Active Substance: ROSUVASTATIN
     Route: 058
  376. ROSUVASTATIN [Concomitant]
     Active Substance: ROSUVASTATIN
     Route: 058
  377. ALBUTEROL [Concomitant]
     Active Substance: ALBUTEROL
     Indication: Asthma
     Dosage: 2 DF, 1X/DAY (METERED DOSE, AEROSOL (AEROSOL FOR INHALATION))
  378. ALBUTEROL [Concomitant]
     Active Substance: ALBUTEROL
     Dosage: 1 DF, 1X/DAY (METERED DOSE, AEROSOL (AEROSOL FOR INHALATION))
  379. ALBUTEROL [Concomitant]
     Active Substance: ALBUTEROL
     Route: 065
  380. CALCIUM AMINOACETATE/CALCIUM CARBONATE/CALCIUM CITRATE/CALCIUM PHOSPHA [Concomitant]
     Route: 065
  381. ALKA-SELTZER [Concomitant]
     Active Substance: ANHYDROUS CITRIC ACID\ASPIRIN\SODIUM BICARBONATE
  382. ASPIRIN [Concomitant]
     Active Substance: ASPIRIN
  383. CALCIUM [Concomitant]
     Active Substance: CALCIUM
  384. CALCIUM CARBONATE\ERGOCALCIFEROL [Concomitant]
     Active Substance: CALCIUM CARBONATE\ERGOCALCIFEROL
  385. METFORMIN [Concomitant]
     Active Substance: METFORMIN HYDROCHLORIDE
  386. METFORMIN [Concomitant]
     Active Substance: METFORMIN HYDROCHLORIDE
  387. METFORMIN [Concomitant]
     Active Substance: METFORMIN HYDROCHLORIDE
  388. METFORMIN [Concomitant]
     Active Substance: METFORMIN HYDROCHLORIDE
  389. METFORMIN [Concomitant]
     Active Substance: METFORMIN HYDROCHLORIDE
     Dosage: 1 DF, 1X/DAY
  390. METFORMIN [Concomitant]
     Active Substance: METFORMIN HYDROCHLORIDE
     Dosage: 4 DF, 1X/DAY
  391. METFORMIN [Concomitant]
     Active Substance: METFORMIN HYDROCHLORIDE
  392. METFORMIN [Concomitant]
     Active Substance: METFORMIN HYDROCHLORIDE
  393. METFORMIN [Concomitant]
     Active Substance: METFORMIN HYDROCHLORIDE
     Dosage: UNK, DAILY
  394. METFORMIN [Concomitant]
     Active Substance: METFORMIN HYDROCHLORIDE
  395. ALENDRONATE SODIUM [Concomitant]
     Active Substance: ALENDRONATE SODIUM
  396. ALENDRONATE SODIUM [Concomitant]
     Active Substance: ALENDRONATE SODIUM
     Dosage: 1 DF, WEEKLY
  397. ALENDRONATE SODIUM [Concomitant]
     Active Substance: ALENDRONATE SODIUM
     Dosage: 1 DF, WEEKLY
  398. ALENDRONATE SODIUM [Concomitant]
     Active Substance: ALENDRONATE SODIUM
     Dosage: 100 MG, DAILY
  399. ALENDRONATE SODIUM [Concomitant]
     Active Substance: ALENDRONATE SODIUM
     Dosage: UNK UNK, WEEKLY
  400. AZATHIOPRINE [Concomitant]
     Active Substance: AZATHIOPRINE
     Dosage: 2 DF, 1X/DAY
  401. AZATHIOPRINE [Concomitant]
     Active Substance: AZATHIOPRINE
     Dosage: CYCLICAL
  402. AZATHIOPRINE [Concomitant]
     Active Substance: AZATHIOPRINE
     Dosage: UNK, DAILY
  403. AZATHIOPRINE [Concomitant]
     Active Substance: AZATHIOPRINE
     Dosage: CYCLICAL
  404. AZATHIOPRINE [Concomitant]
     Active Substance: AZATHIOPRINE
  405. AZATHIOPRINE [Concomitant]
     Active Substance: AZATHIOPRINE
     Dosage: CYCLICAL
     Route: 048
  406. AZATHIOPRINE [Concomitant]
     Active Substance: AZATHIOPRINE
     Dosage: 50 MG, DAILY
  407. BETA GLUCAN [Concomitant]
     Active Substance: BETA GLUCAN
  408. BETAMETHASONE DIPROPIONATE\CLOTRIMAZOLE [Concomitant]
     Active Substance: BETAMETHASONE DIPROPIONATE\CLOTRIMAZOLE
  409. BREO ELLIPTA [Concomitant]
     Active Substance: FLUTICASONE FUROATE\VILANTEROL TRIFENATATE
  410. BUDESONIDE\FORMOTEROL FUMARATE [Concomitant]
     Active Substance: BUDESONIDE\FORMOTEROL FUMARATE
  411. CANDESARTAN CILEXETIL\HYDROCHLOROTHIAZIDE [Concomitant]
     Active Substance: CANDESARTAN CILEXETIL\HYDROCHLOROTHIAZIDE
     Dosage: 32 MG, 1X/DAY
     Route: 048
  412. CEFUROXIME [Concomitant]
     Active Substance: CEFUROXIME
     Dosage: 4 DF, 1X/DAY
  413. CEFUROXIME [Concomitant]
     Active Substance: CEFUROXIME
  414. CEFUROXIME [Concomitant]
     Active Substance: CEFUROXIME
     Dosage: 1 DF, DAILY
  415. CEFUROXIME [Concomitant]
     Active Substance: CEFUROXIME
     Dosage: 500 MG, 2X/DAY
  416. CEFUROXIME [Concomitant]
     Active Substance: CEFUROXIME
     Dosage: UNK UNK, 2X/DAY
  417. CEFUROXIME [Concomitant]
     Active Substance: CEFUROXIME
  418. CEFUROXIME [Concomitant]
     Active Substance: CEFUROXIME
     Dosage: 2 DF, DAILY
  419. CEFUROXIME [Concomitant]
     Active Substance: CEFUROXIME
     Dosage: 2 MG, 2X/DAY
  420. CEFUROXIME [Concomitant]
     Active Substance: CEFUROXIME
     Dosage: UNK
  421. CEPHALEXIN [Concomitant]
     Active Substance: CEPHALEXIN
  422. CLOTRIMAZOLE [Concomitant]
     Active Substance: CLOTRIMAZOLE
     Dosage: 1 DF, 1X/DAY
  423. .ALPHA.-TOCOPHEROL ACETATE, D- [Concomitant]
     Active Substance: .ALPHA.-TOCOPHEROL ACETATE, D-
  424. DOMPERIDONE MALEATE [Concomitant]
     Active Substance: DOMPERIDONE MALEATE
  425. DOMPERIDONE MALEATE [Concomitant]
     Active Substance: DOMPERIDONE MALEATE
     Dosage: CYCLICAL
  426. DOMPERIDONE MALEATE [Concomitant]
     Active Substance: DOMPERIDONE MALEATE
     Dosage: CYCLICAL
  427. DOMPERIDONE MALEATE [Concomitant]
     Active Substance: DOMPERIDONE MALEATE
     Dosage: CYCLICAL
  428. DOMPERIDONE MALEATE [Concomitant]
     Active Substance: DOMPERIDONE MALEATE
     Dosage: CYCLICAL
  429. DOMPERIDONE MALEATE [Concomitant]
     Active Substance: DOMPERIDONE MALEATE
     Dosage: CYCLICAL
  430. LEVOTHYROXINE [Concomitant]
     Active Substance: LEVOTHYROXINE
  431. FERROUS SULFATE [Concomitant]
     Active Substance: FERROUS SULFATE
  432. MORNIFLUMATE [Concomitant]
     Active Substance: MORNIFLUMATE
     Dosage: 1 DF, 1X/DAY
  433. MORNIFLUMATE [Concomitant]
     Active Substance: MORNIFLUMATE
  434. MORNIFLUMATE [Concomitant]
     Active Substance: MORNIFLUMATE
     Dosage: 100 MG, 1X/DAY
  435. MORNIFLUMATE [Concomitant]
     Active Substance: MORNIFLUMATE
     Dosage: UNK, DAILY(CAPSULE)
  436. MORNIFLUMATE [Concomitant]
     Active Substance: MORNIFLUMATE
  437. FUROSEMIDE [Concomitant]
     Active Substance: FUROSEMIDE
  438. FUROSEMIDE [Concomitant]
     Active Substance: FUROSEMIDE
     Dosage: 40 MG, DAILY
  439. FUROSEMIDE [Concomitant]
     Active Substance: FUROSEMIDE
     Dosage: UNK UNK, DAILY
  440. FUROSEMIDE [Concomitant]
     Active Substance: FUROSEMIDE
     Dosage: 1 DF, DAILY
  441. FUROSEMIDE [Concomitant]
     Active Substance: FUROSEMIDE
     Dosage: 2 DF, DAILY
  442. FUROSEMIDE [Concomitant]
     Active Substance: FUROSEMIDE
     Dosage: 1 DF, DAILY
  443. GLUCAGON [Concomitant]
     Active Substance: GLUCAGON
  444. GLUCAGON [Concomitant]
     Active Substance: GLUCAGON
     Dosage: 1 MG, 1X/DAY KIT
  445. HYDROCHLOROTHIAZIDE [Concomitant]
     Active Substance: HYDROCHLOROTHIAZIDE
  446. IMURAN [Concomitant]
     Active Substance: AZATHIOPRINE
     Dosage: 1 DF, 1X/DAY
  447. IMURAN [Concomitant]
     Active Substance: AZATHIOPRINE
     Dosage: UNK UNK, DAILY
  448. INSULIN GLARGINE [Concomitant]
     Active Substance: INSULIN GLARGINE
     Dosage: SOLUTION SUBCUTANEOUS
     Route: 058
  449. INSULIN GLARGINE [Concomitant]
     Active Substance: INSULIN GLARGINE
     Route: 058
  450. INSULIN GLARGINE [Concomitant]
     Active Substance: INSULIN GLARGINE
     Dosage: UNK UNK, DAILY
     Route: 058
  451. INSULIN GLARGINE [Concomitant]
     Active Substance: INSULIN GLARGINE
     Route: 058
  452. LASIX [Concomitant]
     Active Substance: FUROSEMIDE
     Dosage: 1 DF, 1X/DAY
  453. LEVOTHYROXINE SODIUM [Concomitant]
     Active Substance: LEVOTHYROXINE SODIUM
  454. LIRAGLUTIDE [Concomitant]
     Active Substance: LIRAGLUTIDE
  455. MONTELUKAST SODIUM [Concomitant]
     Active Substance: MONTELUKAST SODIUM
  456. PANTOPRAZOLE MAGNESIUM [Concomitant]
     Active Substance: PANTOPRAZOLE MAGNESIUM
     Dosage: 40 MG, 2X/DAY DELAYED RELEASE
  457. PANTOPRAZOLE MAGNESIUM [Concomitant]
     Active Substance: PANTOPRAZOLE MAGNESIUM
     Dosage: 2 DF, 1X/DAY DELAYED RELEASE
  458. PANTOPRAZOLE MAGNESIUM [Concomitant]
     Active Substance: PANTOPRAZOLE MAGNESIUM
  459. NICOTINAMIDE [Concomitant]
     Active Substance: NIACINAMIDE
  460. NOVORAPID [Concomitant]
     Active Substance: INSULIN ASPART
     Dosage: UNK, DAILY
     Route: 058
  461. NOVORAPID [Concomitant]
     Active Substance: INSULIN ASPART
     Dosage: 1 DF, 1X/DAY SOLUTION SUBCUTANEOUS
     Route: 058
  462. NOVORAPID [Concomitant]
     Active Substance: INSULIN ASPART
  463. NUCALA [Concomitant]
     Active Substance: MEPOLIZUMAB
  464. PENICILLIN V POTASSIUM [Concomitant]
     Active Substance: PENICILLIN V POTASSIUM
  465. RUPATADINE [Concomitant]
     Active Substance: RUPATADINE
  466. SENNA LEAF [Concomitant]
     Active Substance: SENNA LEAF
     Route: 048
  467. SENNOSIDES [Concomitant]
     Active Substance: SENNOSIDES
  468. SEPTRA [Concomitant]
     Active Substance: SULFAMETHOXAZOLE\TRIMETHOPRIM
     Indication: Prophylaxis
     Dosage: 3 DF, WEEKLY
  469. SEPTRA [Concomitant]
     Active Substance: SULFAMETHOXAZOLE\TRIMETHOPRIM
     Indication: Prophylaxis
     Route: 042
  470. SEPTRA [Concomitant]
     Active Substance: SULFAMETHOXAZOLE\TRIMETHOPRIM
     Indication: Prophylaxis
  471. SERTRALINE [Concomitant]
     Active Substance: SERTRALINE HYDROCHLORIDE
  472. SULFADIAZINE\TRIMETHOPRIM [Concomitant]
     Active Substance: SULFADIAZINE\TRIMETHOPRIM
     Dosage: 3 DF, WEEKLY
  473. SULFADIAZINE\TRIMETHOPRIM [Concomitant]
     Active Substance: SULFADIAZINE\TRIMETHOPRIM
  474. SULFADIAZINE\TRIMETHOPRIM [Concomitant]
     Active Substance: SULFADIAZINE\TRIMETHOPRIM
     Dosage: UNK UNK, WEEKLY
  475. TAMSULOSIN [Concomitant]
     Active Substance: TAMSULOSIN
     Dosage: 1 MG, 1X/DAY
  476. TAMSULOSIN [Concomitant]
     Active Substance: TAMSULOSIN
     Dosage: 100 MG, 2X/DAY
  477. TAMSULOSIN [Concomitant]
     Active Substance: TAMSULOSIN
     Dosage: 2 MG, 1X/DAY
  478. TAMSULOSIN [Concomitant]
     Active Substance: TAMSULOSIN
     Dosage: 1 MG, 2X/DAY
  479. TAMSULOSIN [Concomitant]
     Active Substance: TAMSULOSIN
     Dosage: 7 MG, 2X/DAY
  480. TAMSULOSIN [Concomitant]
     Active Substance: TAMSULOSIN
  481. TAMSULOSIN [Concomitant]
     Active Substance: TAMSULOSIN
     Dosage: 1 DF, DAILY
  482. TAMSULOSIN [Concomitant]
     Active Substance: TAMSULOSIN
  483. TAMSULOSIN [Concomitant]
     Active Substance: TAMSULOSIN
  484. PANTOPRAZOLE MAGNESIUM [Concomitant]
     Active Substance: PANTOPRAZOLE MAGNESIUM
     Dosage: 1 DF, 2X/DAY
  485. PANTOPRAZOLE MAGNESIUM [Concomitant]
     Active Substance: PANTOPRAZOLE MAGNESIUM
     Dosage: 2 DF, 2X/DAY
  486. PANTOPRAZOLE MAGNESIUM [Concomitant]
     Active Substance: PANTOPRAZOLE MAGNESIUM
  487. PANTOPRAZOLE MAGNESIUM [Concomitant]
     Active Substance: PANTOPRAZOLE MAGNESIUM
     Dosage: UNK, DAILY
  488. PANTOPRAZOLE MAGNESIUM [Concomitant]
     Active Substance: PANTOPRAZOLE MAGNESIUM
     Dosage: UNK, 2X/DAY
  489. TRELEGY ELLIPTA [Concomitant]
     Active Substance: FLUTICASONE FUROATE\UMECLIDINIUM BROMIDE\VILANTEROL TRIFENATATE
     Dosage: 1 DF, 1X/DAY
  490. TRELEGY ELLIPTA [Concomitant]
     Active Substance: FLUTICASONE FUROATE\UMECLIDINIUM BROMIDE\VILANTEROL TRIFENATATE
     Dosage: 7 MG, 1X/DAY
  491. TRELEGY ELLIPTA [Concomitant]
     Active Substance: FLUTICASONE FUROATE\UMECLIDINIUM BROMIDE\VILANTEROL TRIFENATATE
  492. UMECLIDINIUM BROMIDE [Concomitant]
     Active Substance: UMECLIDINIUM BROMIDE
     Dosage: UNK, DAILY
  493. UMECLIDINIUM BROMIDE [Concomitant]
     Active Substance: UMECLIDINIUM BROMIDE
     Dosage: 1 DF, DAILY
  494. UMECLIDINIUM BROMIDE [Concomitant]
     Active Substance: UMECLIDINIUM BROMIDE
     Dosage: 7 MG, DAILY
  495. ANORO ELLIPTA [Concomitant]
     Active Substance: UMECLIDINIUM BROMIDE\VILANTEROL TRIFENATATE
     Indication: Prophylaxis
     Dosage: UNK, DAILY (POWDER)
  496. ANORO ELLIPTA [Concomitant]
     Active Substance: UMECLIDINIUM BROMIDE\VILANTEROL TRIFENATATE
     Dosage: 1 DF, DAILY (POWDER)
  497. CALCIUM GLYCINATE [Concomitant]
     Active Substance: CALCIUM GLYCINATE
  498. CALCIUM LACTATE [Concomitant]
     Active Substance: CALCIUM LACTATE
  499. CALCIUM CHLORIDE [Concomitant]
     Active Substance: CALCIUM CHLORIDE
  500. ALBUTEROL [Concomitant]
     Active Substance: ALBUTEROL
     Indication: Eosinophilic granulomatosis with polyangiitis
  501. PANTOPRAZOLE SODIUM ANHYDROUS [Concomitant]
     Active Substance: PANTOPRAZOLE SODIUM ANHYDROUS
     Dosage: 2 DF, DAILY
  502. PANTOPRAZOLE SODIUM ANHYDROUS [Concomitant]
     Active Substance: PANTOPRAZOLE SODIUM ANHYDROUS
     Dosage: UNK
  503. AZATHIOPRINE SODIUM [Concomitant]
     Active Substance: AZATHIOPRINE SODIUM
  504. AZITHROMYCIN [Concomitant]
     Active Substance: AZITHROMYCIN
     Dosage: UNK, 2X/DAY
  505. AZITHROMYCIN [Concomitant]
     Active Substance: AZITHROMYCIN
     Dosage: 250 MG, DAILY
  506. AZITHROMYCIN [Concomitant]
     Active Substance: AZITHROMYCIN
     Dosage: UNK
  507. AZITHROMYCIN [Concomitant]
     Active Substance: AZITHROMYCIN
     Dosage: 2 DF
  508. AZITHROMYCIN [Concomitant]
     Active Substance: AZITHROMYCIN
  509. AZITHROMYCIN DIHYDRATE [Concomitant]
     Active Substance: AZITHROMYCIN DIHYDRATE
     Dosage: 1 DF, DAILY
  510. AZITHROMYCIN DIHYDRATE [Concomitant]
     Active Substance: AZITHROMYCIN DIHYDRATE
     Dosage: 2 DF, DAILY
  511. CANDESARTAN CILEXETIL [Concomitant]
     Active Substance: CANDESARTAN CILEXETIL
     Dosage: 32 MG, DAILY
  512. CANDESARTAN CILEXETIL [Concomitant]
     Active Substance: CANDESARTAN CILEXETIL
     Dosage: UNK UNK, DAILY
     Route: 048
  513. CANDESARTAN CILEXETIL [Concomitant]
     Active Substance: CANDESARTAN CILEXETIL
     Dosage: 1 DF, DAILY
  514. CANDESARTAN CILEXETIL [Concomitant]
     Active Substance: CANDESARTAN CILEXETIL
  515. CANDESARTAN CILEXETIL AND HYDROCHLOROTHIAZIDE [Concomitant]
     Active Substance: CANDESARTAN CILEXETIL\HYDROCHLOROTHIAZIDE
     Dosage: 1 DF, DAILY
  516. CANDESARTAN CILEXETIL AND HYDROCHLOROTHIAZIDE [Concomitant]
     Active Substance: CANDESARTAN CILEXETIL\HYDROCHLOROTHIAZIDE
  517. CEFUROXIME AXETIL [Concomitant]
     Active Substance: CEFUROXIME AXETIL
     Dosage: UNK, 2X/DAY
  518. CEFUROXIME AXETIL [Concomitant]
     Active Substance: CEFUROXIME AXETIL
     Dosage: 500 MG, 2X/DAY
  519. CEFUROXIME AXETIL [Concomitant]
     Active Substance: CEFUROXIME AXETIL
     Dosage: UNK, DAILY
  520. CEFUROXIME AXETIL [Concomitant]
     Active Substance: CEFUROXIME AXETIL
     Dosage: 500 MG, 2X/DAY
  521. GLUCAGON HYDROCHLORIDE [Concomitant]
     Active Substance: GLUCAGON HYDROCHLORIDE
  522. INSULIN ASPART [Concomitant]
     Active Substance: INSULIN ASPART
  523. METFORMIN HYDROCHLORIDE [Concomitant]
     Active Substance: METFORMIN HYDROCHLORIDE
     Dosage: UNK, DAILY
  524. METFORMIN HYDROCHLORIDE [Concomitant]
     Active Substance: METFORMIN HYDROCHLORIDE
     Dosage: 1 DF, DAILY
  525. METFORMIN HYDROCHLORIDE [Concomitant]
     Active Substance: METFORMIN HYDROCHLORIDE
     Dosage: UNK UNK, 2X/DAY
  526. METFORMIN HYDROCHLORIDE [Concomitant]
     Active Substance: METFORMIN HYDROCHLORIDE
     Dosage: 2 DF, DAILY
  527. METFORMIN HYDROCHLORIDE [Concomitant]
     Active Substance: METFORMIN HYDROCHLORIDE
     Dosage: 4 DF, DAILY
  528. METFORMIN HYDROCHLORIDE [Concomitant]
     Active Substance: METFORMIN HYDROCHLORIDE
     Dosage: 500 MG, DAILY
  529. MORNIFLUMATE [Concomitant]
     Active Substance: MORNIFLUMATE
  530. PANTOPRAZOLE MAGNESIUM [Concomitant]
     Active Substance: PANTOPRAZOLE MAGNESIUM
     Dosage: 1 DF, 2X/DAY
  531. PANTOPRAZOLE SODIUM [Concomitant]
     Active Substance: PANTOPRAZOLE SODIUM
     Dosage: 40 UG, 2X/DAY
  532. PANTOPRAZOLE SODIUM [Concomitant]
     Active Substance: PANTOPRAZOLE SODIUM
     Dosage: UNK
  533. PANTOPRAZOLE SODIUM [Concomitant]
     Active Substance: PANTOPRAZOLE SODIUM
     Dosage: 2 DF, DAILY
  534. PENICILLIN V POTASSIUM [Concomitant]
     Active Substance: PENICILLIN V POTASSIUM
  535. LEVOFLOXACIN [Concomitant]
     Active Substance: LEVOFLOXACIN
  536. LEVOFLOXACIN [Concomitant]
     Active Substance: LEVOFLOXACIN
     Dosage: 500 MG, DAILY
  537. LEVOFLOXACIN [Concomitant]
     Active Substance: LEVOFLOXACIN
  538. LEVOFLOXACIN [Concomitant]
     Active Substance: LEVOFLOXACIN
     Dosage: 750 MG, DAILY
  539. LEVOFLOXACIN [Concomitant]
     Active Substance: LEVOFLOXACIN
  540. TAMSULOSIN HYDROCHLORIDE [Concomitant]
     Active Substance: TAMSULOSIN HYDROCHLORIDE
     Dosage: UNK, DAILY
  541. UMECLIDINIUM BROMIDE AND VILANTEROL TRIFENATATE [Concomitant]
     Active Substance: UMECLIDINIUM BROMIDE\VILANTEROL TRIFENATATE
     Dosage: 1 DF, DAILY
  542. UMECLIDINIUM BROMIDE AND VILANTEROL TRIFENATATE [Concomitant]
     Active Substance: UMECLIDINIUM BROMIDE\VILANTEROL TRIFENATATE
  543. UMECLIDINIUM BROMIDE AND VILANTEROL TRIFENATATE [Concomitant]
     Active Substance: UMECLIDINIUM BROMIDE\VILANTEROL TRIFENATATE
     Dosage: UNK UNK, DAILY
  544. SULFAMETHOXAZOLE AND TRIMETHOPRIM [Concomitant]
     Active Substance: SULFAMETHOXAZOLE\TRIMETHOPRIM
     Dosage: 3 DF, EVERY 3 WEEKS
  545. SULFADIAZINE [Concomitant]
     Active Substance: SULFADIAZINE
     Indication: Prophylaxis
  546. PANTOPRAZOLE [Concomitant]
     Active Substance: PANTOPRAZOLE
  547. PANTOPRAZOLE [Concomitant]
     Active Substance: PANTOPRAZOLE
     Dosage: 4 DF, 2X/DAY
  548. PANTOPRAZOLE [Concomitant]
     Active Substance: PANTOPRAZOLE
     Dosage: 1 DF, 2X/DAY
  549. PANTOPRAZOLE [Concomitant]
     Active Substance: PANTOPRAZOLE
  550. FORMOTEROL [Concomitant]
     Active Substance: FORMOTEROL
  551. ESCITALOPRAM [Concomitant]
     Active Substance: ESCITALOPRAM OXALATE
  552. ESCITALOPRAM [Concomitant]
     Active Substance: ESCITALOPRAM OXALATE
     Dosage: UNK UNK, DAILY
  553. ESCITALOPRAM [Concomitant]
     Active Substance: ESCITALOPRAM OXALATE
  554. ESCITALOPRAM [Concomitant]
     Active Substance: ESCITALOPRAM OXALATE
     Dosage: 2 DF
  555. CHOLECALCIFEROL [Concomitant]
     Active Substance: CHOLECALCIFEROL
  556. CANDESARTAN [Concomitant]
     Active Substance: CANDESARTAN
  557. CANDESARTAN [Concomitant]
     Active Substance: CANDESARTAN
  558. BETAMETHASONE [Concomitant]
     Active Substance: BETAMETHASONE
  559. BETAMETHASONE DIPROPIONATE [Concomitant]
     Active Substance: BETAMETHASONE DIPROPIONATE
  560. CALCIUM CITRATE\CHOLECALCIFEROL [Concomitant]
     Active Substance: CALCIUM CITRATE\CHOLECALCIFEROL
  561. MOXIFLOXACIN [Concomitant]
     Active Substance: MOXIFLOXACIN
  562. MOMETASONE FUROATE [Concomitant]
     Active Substance: MOMETASONE FUROATE
  563. DOXAZOSIN [Concomitant]
     Active Substance: DOXAZOSIN MESYLATE
  564. FORMOTEROL FUMARATE [Concomitant]
     Active Substance: FORMOTEROL FUMARATE
  565. TIOTROPIUM BROMIDE [Concomitant]
     Active Substance: TIOTROPIUM BROMIDE
     Dosage: 2 DF, DAILY
  566. ALBUTEROL [Concomitant]
     Active Substance: ALBUTEROL
     Indication: Asthma
     Dosage: 2 DF, DAILY
  567. ALBUTEROL [Concomitant]
     Active Substance: ALBUTEROL
     Indication: Eosinophilic granulomatosis with polyangiitis
  568. FORMOTEROL FUMARATE\MOMETASONE FUROATE [Concomitant]
     Active Substance: FORMOTEROL FUMARATE\MOMETASONE FUROATE
     Dosage: 2 DF, 2X/DAY
  569. FORMOTEROL FUMARATE\MOMETASONE FUROATE [Concomitant]
     Active Substance: FORMOTEROL FUMARATE\MOMETASONE FUROATE
  570. FORMOTEROL FUMARATE\MOMETASONE FUROATE [Concomitant]
     Active Substance: FORMOTEROL FUMARATE\MOMETASONE FUROATE
     Dosage: 500 MG, DAILY
  571. FORMOTEROL FUMARATE\MOMETASONE FUROATE [Concomitant]
     Active Substance: FORMOTEROL FUMARATE\MOMETASONE FUROATE
  572. CALCIUM\CHOLECALCIFEROL\MAGNESIUM OXIDE [Concomitant]
     Active Substance: CALCIUM\CHOLECALCIFEROL\MAGNESIUM OXIDE
  573. PIOGLITAZONE HYDROCHLORIDE [Concomitant]
     Active Substance: PIOGLITAZONE HYDROCHLORIDE

REACTIONS (39)
  - Haemoptysis [Unknown]
  - Pulmonary alveolar haemorrhage [Unknown]
  - Therapeutic product effect incomplete [Unknown]
  - Asthma [Unknown]
  - Full blood count abnormal [Unknown]
  - Condition aggravated [Unknown]
  - Conjunctivitis allergic [Unknown]
  - Wheezing [Unknown]
  - Spirometry abnormal [Unknown]
  - Hypoxia [Unknown]
  - Dyspnoea [Unknown]
  - Dust allergy [Unknown]
  - Arteriosclerosis coronary artery [Unknown]
  - Pulmonary embolism [Unknown]
  - Mite allergy [Unknown]
  - Mycotic allergy [Unknown]
  - Productive cough [Unknown]
  - Thrombosis [Unknown]
  - Arteriosclerosis [Unknown]
  - Nodule [Unknown]
  - Normochromic normocytic anaemia [Unknown]
  - Loss of personal independence in daily activities [Unknown]
  - Sleep disorder due to a general medical condition [Unknown]
  - Eosinophilic granulomatosis with polyangiitis [Unknown]
  - Hypothyroidism [Unknown]
  - Pulmonary fibrosis [Unknown]
  - Pulmonary vasculitis [Unknown]
  - Skin exfoliation [Unknown]
  - Anxiety [Unknown]
  - Respiratory symptom [Unknown]
  - Pain in extremity [Unknown]
  - Obstructive airways disorder [Unknown]
  - Neurological symptom [Unknown]
  - Neuritis [Unknown]
  - Lung disorder [Unknown]
  - Vasculitis [Unknown]
  - Antineutrophil cytoplasmic antibody positive [Unknown]
  - Forced expiratory volume decreased [Unknown]
  - Total lung capacity abnormal [Unknown]
